FAERS Safety Report 7701079-1 (Version None)
Quarter: 2011Q3

REPORT INFORMATION
  Report Type: 
  Country: None (occurrence: None)
  Receive Date: 20110822
  Receipt Date: 20110809
  Transmission Date: 20111222
  Serious: Yes (Other)
  Sender: FDA-Public Use
  Company Number: GB-UCBSA-038962

PATIENT
  Age: 52 Year
  Sex: Female

DRUGS (2)
  1. TOPAMAX [Suspect]
     Route: 048
  2. KEPPRA [Suspect]
     Dosage: UNKNOWN DOSE

REACTIONS (1)
  - TUBULOINTERSTITIAL NEPHRITIS [None]
